FAERS Safety Report 8612153-X (Version None)
Quarter: 2012Q3

REPORT INFORMATION
  Report Type: 
  Country: None (occurrence: None)
  Receive Date: 20120822
  Receipt Date: 20120814
  Transmission Date: 20120928
  Serious: Yes (Hospitalization)
  Sender: FDA-Public Use
  Company Number: US-BAYER-2012-084071

PATIENT
  Age: 19 Year
  Sex: Female
  Weight: 83 kg

DRUGS (5)
  1. YASMIN [Suspect]
  2. IBUPROFEN [Concomitant]
     Indication: OEDEMA PERIPHERAL
  3. IBUPROFEN [Concomitant]
     Indication: PAIN IN EXTREMITY
  4. ALBUTEROL [Concomitant]
  5. PERCOCET [Concomitant]
     Indication: PAIN

REACTIONS (2)
  - DEEP VEIN THROMBOSIS [None]
  - PULMONARY EMBOLISM [None]
